FAERS Safety Report 19186687 (Version 1)
Quarter: 2021Q2

REPORT INFORMATION
  Report Type: Spontaneous
  Country: TW (occurrence: TW)
  Receive Date: 20210427
  Receipt Date: 20210427
  Transmission Date: 20210717
  Serious: Yes (Other)
  Sender: FDA-Public Use
  Company Number: TW-ASTRAZENECA-2021A317610

PATIENT
  Age: 70 Year
  Sex: Female

DRUGS (1)
  1. GEFITINIB. [Suspect]
     Active Substance: GEFITINIB
     Indication: LUNG ADENOCARCINOMA STAGE IV
     Route: 048
     Dates: start: 20091102

REACTIONS (6)
  - Malignant transformation [Unknown]
  - Diarrhoea [Unknown]
  - Drug resistance [Unknown]
  - Paronychia [Unknown]
  - Dermatitis acneiform [Unknown]
  - Malignant neoplasm progression [Recovered/Resolved]
